FAERS Safety Report 6617389-5 (Version None)
Quarter: 2010Q1

REPORT INFORMATION
  Report Type: 
  Country: None (occurrence: None)
  Receive Date: 20100307
  Receipt Date: 20100216
  Transmission Date: 20100710
  Serious: Yes (Other)
  Sender: FDA-Public Use
  Company Number: US-BAYER-201014834NA

PATIENT
  Age: 47 Year
  Sex: Female
  Weight: 65 kg

DRUGS (1)
  1. MAGNEVIST [Suspect]
     Indication: HEADACHE
     Dosage: TOTAL DAILY DOSE: 13 ML  UNIT DOSE: 15 ML
     Dates: start: 20100216, end: 20100216

REACTIONS (3)
  - CHEST DISCOMFORT [None]
  - COUGH [None]
  - HAEMATEMESIS [None]
